FAERS Safety Report 8991941 (Version 2)
Quarter: 2013Q1

REPORT INFORMATION
  Report Type: Spontaneous
  Country: US (occurrence: US)
  Receive Date: 20121231
  Receipt Date: 20130107
  Transmission Date: 20140127
  Serious: Yes (Hospitalization)
  Sender: FDA-Public Use
  Company Number: US-ROCHE-1153373

PATIENT
  Sex: Female

DRUGS (5)
  1. PEGASYS [Suspect]
     Indication: HEPATITIS C
     Route: 065
     Dates: start: 20120424
  2. PEGASYS [Suspect]
     Route: 065
     Dates: start: 2001, end: 2001
  3. RIBAVIRIN [Suspect]
     Indication: HEPATITIS C
     Dosage: IN DIVIDED DOSES
     Route: 065
     Dates: start: 20120424
  4. RIBAVIRIN [Suspect]
     Route: 065
     Dates: start: 2001, end: 2001
  5. VICTRELIS [Suspect]
     Indication: HEPATITIS C
     Route: 065
     Dates: start: 20120515

REACTIONS (6)
  - Alopecia [Unknown]
  - Sarcoidosis [Unknown]
  - Pulmonary thrombosis [Unknown]
  - Lung infection [Unknown]
  - Dyspnoea [Unknown]
  - Pain [Unknown]
